FAERS Safety Report 13814661 (Version 1)
Quarter: 2017Q3

REPORT INFORMATION
  Report Type: Spontaneous
  Country: US (occurrence: US)
  Receive Date: 20170731
  Receipt Date: 20170731
  Transmission Date: 20171127
  Serious: No
  Sender: FDA-Public Use
  Company Number: None

PATIENT
  Age: 67 Year
  Sex: Male
  Weight: 49.94 kg

DRUGS (15)
  1. CA [Concomitant]
  2. ALBUTEROL SULFATE (PROVENTIL) [Concomitant]
  3. ALBUTEROL SULFATE INHALATION SOLN. 0.083% [Concomitant]
  4. CA/D [Concomitant]
  5. MG0 [Concomitant]
  6. MOMETASONE FUROATE (ASMANEX) [Concomitant]
  7. ENSURE [Concomitant]
     Active Substance: AMINO ACIDS\DEXTROSE\ELECTROLYTES NOS\SOYBEAN OIL\VITAMINS
  8. VORICONAZOLE. [Suspect]
     Active Substance: VORICONAZOLE
     Indication: ASPERGILLUS INFECTION
     Route: 048
     Dates: start: 20170102
  9. VORICONAZOLE. [Suspect]
     Active Substance: VORICONAZOLE
     Indication: LUNG INFECTION
     Route: 048
     Dates: start: 20170102
  10. TIOTROPIUM BROMIDE AND OLODATEROL (STIOLTO) [Concomitant]
  11. TYLENOL [Concomitant]
     Active Substance: ACETAMINOPHEN
  12. VITAMIN D3 [Concomitant]
     Active Substance: CHOLECALCIFEROL
  13. O2 [Concomitant]
  14. VORICONAZOLE. [Concomitant]
     Active Substance: VORICONAZOLE
  15. THIAMINE HCL [Concomitant]

REACTIONS (2)
  - Sunburn [None]
  - Photosensitivity reaction [None]

NARRATIVE: CASE EVENT DATE: 20170112
